FAERS Safety Report 4846837-6 (Version None)
Quarter: 2005Q4

REPORT INFORMATION
  Report Type: 
  Country: None (occurrence: None)
  Receive Date: 20051207
  Receipt Date: 20051123
  Transmission Date: 20060501
  Serious: Yes (Hospitalization)
  Sender: FDA-Public Use
  Company Number: PHBS2005CL17311

PATIENT
  Age: 74 Year
  Sex: Male

DRUGS (7)
  1. AMIODARONE [Concomitant]
  2. LIPITOR [Concomitant]
  3. IDON [Concomitant]
  4. ECOTRIN [Concomitant]
  5. PLAVIX [Concomitant]
  6. GLUCOSAMINE [Concomitant]
  7. TAREG D [Suspect]
     Dosage: VALS 160 / HCT 12.5 MG/DAY
     Route: 048
     Dates: start: 20020101

REACTIONS (3)
  - ANKLE FRACTURE [None]
  - ANKLE OPERATION [None]
  - CEREBROVASCULAR ACCIDENT [None]
